FAERS Safety Report 5967838-0 (Version None)
Quarter: 2008Q4

REPORT INFORMATION
  Report Type: 
  Country: None (occurrence: None)
  Receive Date: 20081126
  Receipt Date: 20081114
  Transmission Date: 20090506
  Serious: Yes (Other)
  Sender: FDA-Public Use
  Company Number: BR-BAYER-200821126LA

PATIENT
  Age: 89 Year
  Sex: Male

DRUGS (1)
  1. NEXAVAR [Suspect]
     Indication: NEOPLASM MALIGNANT
     Dates: start: 20080901

REACTIONS (2)
  - PULMONARY OEDEMA [None]
  - RENAL IMPAIRMENT [None]
